FAERS Safety Report 20922952 (Version 1)
Quarter: 2022Q2

REPORT INFORMATION
  Report Type: Other
  Country: CN (occurrence: None)
  Receive Date: 20220607
  Receipt Date: 20220607
  Transmission Date: 20220720
  Serious: Yes (Death, Other)
  Sender: FDA-Public Use
  Company Number: CN-ROCHE-1810643

PATIENT
  Age: 65 Year
  Sex: Female
  Weight: 58 kg

DRUGS (2)
  1. AVASTIN [Suspect]
     Active Substance: BEVACIZUMAB
     Indication: Rectal cancer
     Route: 041
     Dates: start: 20140504
  2. AVASTIN [Suspect]
     Active Substance: BEVACIZUMAB
     Route: 041
     Dates: start: 20181023

REACTIONS (7)
  - Muscular weakness [Unknown]
  - Cerebral infarction [Unknown]
  - Cerebral infarction [Unknown]
  - Fall [Unknown]
  - Back pain [Unknown]
  - Motion sickness [Unknown]
  - Death [Fatal]

NARRATIVE: CASE EVENT DATE: 20220501
